FAERS Safety Report 4554380-7 (Version None)
Quarter: 2005Q1

REPORT INFORMATION
  Report Type: 
  Country: None (occurrence: None)
  Receive Date: 20050118
  Receipt Date: 20050104
  Transmission Date: 20050727
  Serious: Yes (Other)
  Sender: FDA-Public Use
  Company Number: FR-JNJFOC-20040501499

PATIENT
  Sex: Female
  Weight: 2.38 kg

DRUGS (12)
  1. PROPULSID [Suspect]
     Route: 049
     Dates: start: 20040506
  2. PROPULSID [Suspect]
     Route: 049
     Dates: start: 20040506
  3. PROPULSID [Suspect]
     Route: 049
     Dates: start: 20040506
  4. UVESTEROL [Concomitant]
     Route: 049
     Dates: start: 20040315
  5. UVESTEROL [Concomitant]
     Route: 049
     Dates: start: 20040315
  6. UVESTEROL [Concomitant]
     Route: 049
     Dates: start: 20040315
  7. UVESTEROL [Concomitant]
     Indication: PROPHYLAXIS
     Route: 049
     Dates: start: 20040315
  8. IRON SULFATETHIAMIN COMPOUND TAB [Concomitant]
     Indication: ANAEMIA
     Route: 049
     Dates: start: 20040430
  9. RIFAMYCIN [Concomitant]
     Indication: CONJUNCTIVITIS
     Route: 065
     Dates: start: 20040503
  10. NEO RECORMON [Concomitant]
     Indication: ANAEMIA
     Route: 030
     Dates: start: 20040408
  11. MOTILIUM [Concomitant]
     Route: 049
     Dates: start: 20040323, end: 20040506
  12. DEBRIDAT [Concomitant]
     Route: 049
     Dates: start: 20040501, end: 20040506

REACTIONS (2)
  - ELECTROCARDIOGRAM QT CORRECTED INTERVAL PROLONGED [None]
  - ELECTROCARDIOGRAM T WAVE AMPLITUDE DECREASED [None]
